FAERS Safety Report 4313804-0 (Version None)
Quarter: 2004Q1

REPORT INFORMATION
  Report Type: 
  Country: None (occurrence: None)
  Receive Date: 20040305
  Receipt Date: 20040225
  Transmission Date: 20041129
  Serious: Yes (Death, Hospitalization)
  Sender: FDA-Public Use
  Company Number: 2004201383DK

PATIENT
  Sex: 0

DRUGS (1)
  1. MINPROSTIN (DINOPROSTONE) TABLET, VAGINAL [Suspect]
     Indication: INDUCED LABOUR
     Dosage: 3 MG, FIRST DOSE, VAGINAL
     Route: 067
     Dates: start: 20030414, end: 20030414

REACTIONS (8)
  - CAESAREAN SECTION [None]
  - COMPLICATIONS OF MATERNAL EXPOSURE TO THERAPEUTIC DRUGS [None]
  - DEPRESSED LEVEL OF CONSCIOUSNESS [None]
  - FEELING ABNORMAL [None]
  - LABOUR PAIN [None]
  - MATERNAL DRUGS AFFECTING FOETUS [None]
  - STILLBIRTH [None]
  - UTERINE RUPTURE [None]
